FAERS Safety Report 18355681 (Version 1)
Quarter: 2020Q4

REPORT INFORMATION
  Report Type: Spontaneous
  Country: CN (occurrence: CN)
  Receive Date: 20201007
  Receipt Date: 20201007
  Transmission Date: 20210114
  Serious: Yes (Other)
  Sender: FDA-Public Use
  Company Number: CN-PFIZER INC-2020382190

PATIENT
  Age: 54 Year
  Sex: Male
  Weight: 73.5 kg

DRUGS (1)
  1. LINEZOLID. [Suspect]
     Active Substance: LINEZOLID
     Indication: SEPSIS
     Dosage: 0.6 G, BID
     Route: 048
     Dates: start: 20200718, end: 20200725

REACTIONS (5)
  - Fall [Unknown]
  - Vision blurred [Recovered/Resolved]
  - Platelet count decreased [Recovered/Resolved]
  - Visual impairment [Recovered/Resolved]
  - Retinal haemorrhage [Unknown]

NARRATIVE: CASE EVENT DATE: 20200724
